FAERS Safety Report 7034092-0 (Version None)
Quarter: 2010Q4

REPORT INFORMATION
  Report Type: 
  Country: None (occurrence: None)
  Receive Date: 20101008
  Receipt Date: 20101006
  Transmission Date: 20110411
  Serious: Yes (Death)
  Sender: FDA-Public Use
  Company Number: US-ASTRAZENECA-2007UW01144

PATIENT
  Age: 18059 Day
  Sex: Male
  Weight: 147 kg

DRUGS (32)
  1. SEROQUEL [Suspect]
     Indication: SCHIZOPHRENIA
     Route: 048
     Dates: start: 20001005, end: 20011006
  2. SEROQUEL [Suspect]
     Indication: ANXIETY
     Route: 048
     Dates: start: 20001005, end: 20011006
  3. SEROQUEL [Suspect]
     Indication: THINKING ABNORMAL
     Route: 048
     Dates: start: 20001005, end: 20011006
  4. SEROQUEL [Suspect]
     Indication: MENTAL DISORDER
     Route: 048
     Dates: start: 20001005, end: 20011006
  5. SEROQUEL [Suspect]
     Indication: PARANOIA
     Route: 048
     Dates: start: 20001005, end: 20011006
  6. SEROQUEL [Suspect]
     Indication: PSYCHOTIC DISORDER
     Route: 048
     Dates: start: 20001005, end: 20011006
  7. SEROQUEL [Suspect]
     Route: 048
     Dates: start: 20011221, end: 20040101
  8. SEROQUEL [Suspect]
     Route: 048
     Dates: start: 20011221, end: 20040101
  9. SEROQUEL [Suspect]
     Route: 048
     Dates: start: 20011221, end: 20040101
  10. SEROQUEL [Suspect]
     Route: 048
     Dates: start: 20011221, end: 20040101
  11. SEROQUEL [Suspect]
     Route: 048
     Dates: start: 20011221, end: 20040101
  12. SEROQUEL [Suspect]
     Route: 048
     Dates: start: 20011221, end: 20040101
  13. SEROQUEL [Suspect]
     Route: 048
     Dates: start: 20030210, end: 20040211
  14. SEROQUEL [Suspect]
     Route: 048
     Dates: start: 20030210, end: 20040211
  15. SEROQUEL [Suspect]
     Route: 048
     Dates: start: 20030210, end: 20040211
  16. SEROQUEL [Suspect]
     Route: 048
     Dates: start: 20030210, end: 20040211
  17. SEROQUEL [Suspect]
     Route: 048
     Dates: start: 20030210, end: 20040211
  18. SEROQUEL [Suspect]
     Route: 048
     Dates: start: 20030210, end: 20040211
  19. SEROQUEL [Suspect]
     Dosage: TWO TAB AT BEDTIME
     Route: 048
     Dates: start: 20040713, end: 20050714
  20. SEROQUEL [Suspect]
     Dosage: TWO TAB AT BEDTIME
     Route: 048
     Dates: start: 20040713, end: 20050714
  21. SEROQUEL [Suspect]
     Dosage: TWO TAB AT BEDTIME
     Route: 048
     Dates: start: 20040713, end: 20050714
  22. SEROQUEL [Suspect]
     Dosage: TWO TAB AT BEDTIME
     Route: 048
     Dates: start: 20040713, end: 20050714
  23. SEROQUEL [Suspect]
     Dosage: TWO TAB AT BEDTIME
     Route: 048
     Dates: start: 20040713, end: 20050714
  24. SEROQUEL [Suspect]
     Dosage: TWO TAB AT BEDTIME
     Route: 048
     Dates: start: 20040713, end: 20050714
  25. ABILIFY [Concomitant]
  26. HALDOL [Concomitant]
     Dates: start: 19790101
  27. NAVANE [Concomitant]
  28. RISPERDAL [Concomitant]
     Indication: PARANOIA
     Route: 048
     Dates: start: 20001005, end: 20011006
  29. THORAZINE [Concomitant]
  30. TRILAFON [Concomitant]
  31. TRIAVIL [Concomitant]
  32. LANSOPRAZOLE [Concomitant]
     Indication: GASTROOESOPHAGEAL REFLUX DISEASE
     Route: 048
     Dates: start: 20001020, end: 20011021

REACTIONS (2)
  - DEATH [None]
  - TYPE 2 DIABETES MELLITUS [None]
